FAERS Safety Report 9755317 (Version 1)
Quarter: 2013Q4

REPORT INFORMATION
  Report Type: Spontaneous
  Country: US (occurrence: US)
  Receive Date: 20131213
  Receipt Date: 20131213
  Transmission Date: 20140711
  Serious: No
  Sender: FDA-Public Use
  Company Number: US-GLAXOSMITHKLINE-A1015914A

PATIENT
  Age: 57 Year
  Sex: Female

DRUGS (1)
  1. NICODERM CQ CLEAR 21MG [Suspect]
     Indication: EX-TOBACCO USER
     Dosage: 21MG UNKNOWN
     Route: 061

REACTIONS (10)
  - Application site pain [Recovered/Resolved]
  - Skin lesion [Recovered/Resolved]
  - Application site reaction [Recovered/Resolved]
  - Product quality issue [Unknown]
  - Application site swelling [Recovered/Resolved]
  - Application site pruritus [Recovered/Resolved]
  - Application site erythema [Recovered/Resolved]
  - Flatulence [Recovered/Resolved]
  - Abnormal faeces [Recovered/Resolved]
  - Application site discolouration [Recovered/Resolved]
